FAERS Safety Report 10231456 (Version 1)
Quarter: 2014Q2

REPORT INFORMATION
  Report Type: Spontaneous
  Country: FR (occurrence: FR)
  Receive Date: 20140611
  Receipt Date: 20140611
  Transmission Date: 20141212
  Serious: Yes (Hospitalization)
  Sender: FDA-Public Use
  Company Number: FR-PFIZER INC-2014153664

PATIENT
  Age: 21 Year
  Sex: Female

DRUGS (6)
  1. PRODILANTIN [Suspect]
     Indication: EPILEPSY
     Dosage: 1 G, DAILY
     Route: 042
     Dates: start: 20140424, end: 20140424
  2. PRODILANTIN [Suspect]
     Dosage: 500 MG, DAILY
     Dates: start: 20140425, end: 20140425
  3. PROPOFOL [Concomitant]
     Indication: SEDATION
     Dosage: 300 MG/H
     Route: 042
     Dates: start: 20140424, end: 20140425
  4. VALIUM [Concomitant]
     Indication: EPILEPSY
     Dosage: 10 DROPS IN ONE SINGLE DOSE
     Route: 048
     Dates: start: 20140425, end: 20140425
  5. SUFENTANIL [Concomitant]
     Indication: SEDATION
     Dosage: 10 UG/H
     Route: 042
     Dates: start: 20140424, end: 20140425
  6. RIVOTRIL [Concomitant]
     Dosage: UNK
     Route: 042
     Dates: start: 20140424

REACTIONS (6)
  - Somnolence [Recovered/Resolved]
  - Nystagmus [Recovered/Resolved]
  - Ataxia [Recovered/Resolved]
  - Extensor plantar response [Recovered/Resolved]
  - Headache [Recovered/Resolved]
  - Vomiting [Recovered/Resolved]
